FAERS Safety Report 7669440-1 (Version None)
Quarter: 2011Q3

REPORT INFORMATION
  Report Type: 
  Country: None (occurrence: None)
  Receive Date: 20110808
  Receipt Date: 20110727
  Transmission Date: 20111222
  Serious: Yes (Hospitalization)
  Sender: FDA-Public Use
  Company Number: JP-ROCHE-794559

PATIENT
  Age: 60 Year
  Sex: Female

DRUGS (2)
  1. XELODA [Suspect]
     Dosage: DRUG: XELODA 300
     Route: 048
  2. AVASTIN [Suspect]
     Route: 042

REACTIONS (1)
  - URETERIC HAEMORRHAGE [None]
